FAERS Safety Report 7356134-5 (Version None)
Quarter: 2011Q1

REPORT INFORMATION
  Report Type: 
  Country: None (occurrence: None)
  Receive Date: 20110316
  Receipt Date: 20110309
  Transmission Date: 20110831
  Serious: Yes (Hospitalization)
  Sender: FDA-Public Use
  Company Number: US-ELI_LILLY_AND_COMPANY-US201103003397

PATIENT
  Sex: Female

DRUGS (2)
  1. CYMBALTA [Suspect]
     Dosage: UNK, UNKNOWN
     Dates: start: 20110306
  2. DIAZIDE [Concomitant]
     Dates: start: 20110306

REACTIONS (1)
  - COLITIS [None]
